FAERS Safety Report 10190962 (Version 1)
Quarter: 2014Q2

REPORT INFORMATION
  Report Type: Spontaneous
  Country: GB (occurrence: GB)
  Receive Date: 20140523
  Receipt Date: 20140523
  Transmission Date: 20141212
  Serious: No
  Sender: FDA-Public Use
  Company Number: GB-JNJFOC-20140508218

PATIENT
  Sex: Female

DRUGS (3)
  1. DUROGESIC DTRANS [Suspect]
     Indication: BACK PAIN
     Route: 062
  2. DUROGESIC DTRANS [Suspect]
     Indication: FIBROMYALGIA
     Route: 062
  3. DUROGESIC DTRANS [Suspect]
     Indication: BREAKTHROUGH PAIN
     Route: 062

REACTIONS (4)
  - Breakthrough pain [Unknown]
  - Product adhesion issue [Unknown]
  - Hyperhidrosis [Unknown]
  - Wrong technique in drug usage process [Unknown]
